FAERS Safety Report 21883305 (Version 1)
Quarter: 2023Q1

REPORT INFORMATION
  Report Type: Spontaneous
  Country: US (occurrence: US)
  Receive Date: 20230119
  Receipt Date: 20230119
  Transmission Date: 20230418
  Serious: Yes (Other)
  Sender: FDA-Public Use
  Company Number: US-SUN PHARMACEUTICAL INDUSTRIES LTD-2023R1-373800

PATIENT
  Age: 50 Year
  Sex: Female

DRUGS (8)
  1. ACETAZOLAMIDE [Suspect]
     Active Substance: ACETAZOLAMIDE
     Indication: Antiinflammatory therapy
     Dosage: 500 MILLIGRAM, BID
     Route: 047
  2. BRIMONIDINE [Suspect]
     Active Substance: BRIMONIDINE TARTRATE
     Indication: Antiinflammatory therapy
     Dosage: UNK UNK, TID
     Route: 047
  3. DORZOLAMIDE [Suspect]
     Active Substance: DORZOLAMIDE
     Indication: Antiinflammatory therapy
     Dosage: UNK
     Route: 047
  4. NEPAFENAC [Suspect]
     Active Substance: NEPAFENAC
     Indication: Antiinflammatory therapy
     Dosage: UNK UNK, BID
     Route: 047
  5. PREDNISOLONE [Suspect]
     Active Substance: PREDNISOLONE
     Indication: Antiinflammatory therapy
     Dosage: UNK
     Route: 061
  6. LOTEPREDNOL [Suspect]
     Active Substance: LOTEPREDNOL
     Indication: Antiinflammatory therapy
     Dosage: UNK
     Route: 047
  7. LATANOPROST [Suspect]
     Active Substance: LATANOPROST
     Indication: Antiinflammatory therapy
     Dosage: UNK
     Route: 047
  8. NETARSUDIL [Suspect]
     Active Substance: NETARSUDIL
     Indication: Antiinflammatory therapy
     Dosage: UNK
     Route: 047

REACTIONS (4)
  - Therapy non-responder [Unknown]
  - Iritis [Unknown]
  - Intraocular pressure increased [Unknown]
  - Drug intolerance [Unknown]
